FAERS Safety Report 16157075 (Version 1)
Quarter: 2019Q2

REPORT INFORMATION
  Report Type: Spontaneous
  Country: CA (occurrence: CA)
  Receive Date: 20190403
  Receipt Date: 20190403
  Transmission Date: 20190711
  Serious: Yes (Other)
  Sender: FDA-Public Use
  Company Number: None

PATIENT
  Age: 28 Year
  Sex: Female
  Weight: 58.5 kg

DRUGS (2)
  1. FOLIC ACID. [Concomitant]
     Active Substance: FOLIC ACID
  2. DOXYCYCLINE. [Suspect]
     Active Substance: DOXYCYCLINE
     Indication: POST PROCEDURAL INFECTION
     Route: 048
     Dates: start: 20190328, end: 20190331

REACTIONS (4)
  - Paraesthesia [None]
  - Paraesthesia oral [None]
  - Hypoaesthesia [None]
  - Pseudostroke [None]

NARRATIVE: CASE EVENT DATE: 20190401
